FAERS Safety Report 6579440-0 (Version None)
Quarter: 2010Q1

REPORT INFORMATION
  Report Type: 
  Country: None (occurrence: None)
  Receive Date: 20100212
  Receipt Date: 20100208
  Transmission Date: 20100710
  Serious: Yes (Death)
  Sender: FDA-Public Use
  Company Number: CN-BRISTOL-MYERS SQUIBB COMPANY-14968895

PATIENT
  Sex: Male

DRUGS (1)
  1. MAXIPIME [Suspect]
     Indication: PNEUMONIA

REACTIONS (1)
  - DEATH [None]
